FAERS Safety Report 7427088-8 (Version None)
Quarter: 2011Q2

REPORT INFORMATION
  Report Type: 
  Country: None (occurrence: None)
  Receive Date: 20110420
  Receipt Date: 20110415
  Transmission Date: 20111010
  Serious: Yes (Life-Threatening, Hospitalization)
  Sender: FDA-Public Use
  Company Number: US-US-EMD SERONO, INC.-238982K09USA

PATIENT
  Sex: Female

DRUGS (6)
  1. REBIF [Suspect]
     Indication: MULTIPLE SCLEROSIS
     Route: 058
     Dates: start: 20081009
  2. PRAVASTATIN [Concomitant]
     Indication: BLOOD CHOLESTEROL INCREASED
     Route: 065
  3. ALTACE [Concomitant]
     Indication: DIABETES PROPHYLAXIS
     Route: 065
  4. ACETAMINOPHEN [Concomitant]
     Indication: PREMEDICATION
  5. 14 OTHER UNSPECIFIED MEDICATIONS [Concomitant]
  6. GLUCOPHAGE [Concomitant]
     Indication: GLUCOSE TOLERANCE DECREASED
     Route: 065

REACTIONS (9)
  - POST PROCEDURAL COMPLICATION [None]
  - RESPIRATORY FAILURE [None]
  - VENTRICULAR EXTRASYSTOLES [None]
  - HEPATIC ENZYME INCREASED [None]
  - HYPOAESTHESIA [None]
  - CARDIAC FAILURE [None]
  - RENAL FAILURE [None]
  - MULTIPLE SCLEROSIS RELAPSE [None]
  - INFLUENZA LIKE ILLNESS [None]
